FAERS Safety Report 17869703 (Version 1)
Quarter: 2020Q2

REPORT INFORMATION
  Report Type: Spontaneous
  Country: AU (occurrence: AU)
  Receive Date: 20200608
  Receipt Date: 20200608
  Transmission Date: 20200714
  Serious: Yes (Other)
  Sender: FDA-Public Use
  Company Number: AU-GENERIC HEALTH PTY. LTD.-2020-02636

PATIENT
  Age: 35 Year
  Sex: Female
  Weight: 100 kg

DRUGS (6)
  1. MEROPENEM. [Suspect]
     Active Substance: MEROPENEM
     Indication: SEPSIS
     Dosage: 2 GRAM, TID (8 HOURLY)
     Route: 042
  2. MEROPENEM. [Suspect]
     Active Substance: MEROPENEM
     Dosage: 2 GRAM, TID (8 HOURLY (AS EXTENDED INFUSIONS OVER 4 HOURS))
     Route: 042
  3. CIPROFLOXACIN. [Suspect]
     Active Substance: CIPROFLOXACIN
     Indication: SEPSIS
     Dosage: 400 MILLIGRAM, TID (8 HOURLY)
     Route: 042
  4. MEROPENEM. [Suspect]
     Active Substance: MEROPENEM
     Dosage: 2 GRAM, QID (6 HOURLY (AS EXTENDED INFUSIONS OVER 3 HOURS))
     Route: 042
  5. PIPERACILLIN AND TAZOBACTAM [Suspect]
     Active Substance: PIPERACILLIN SODIUM\TAZOBACTAM SODIUM
     Indication: SEPSIS
     Dosage: 4.5 GRAM, QID (6 HOURLY)
     Route: 042
  6. AMIKACIN. [Suspect]
     Active Substance: AMIKACIN
     Indication: SEPSIS
     Dosage: 1500 MILLIGRAM, QD (24 HOURLY)
     Route: 042

REACTIONS (4)
  - Sepsis [Unknown]
  - Drug level increased [Unknown]
  - Drug resistance [Unknown]
  - Condition aggravated [Unknown]
